FAERS Safety Report 5828930-4 (Version None)
Quarter: 2008Q3

REPORT INFORMATION
  Report Type: 
  Country: None (occurrence: None)
  Receive Date: 20080731
  Receipt Date: 20080723
  Transmission Date: 20090109
  Serious: Yes (Other)
  Sender: FDA-Public Use
  Company Number: FR-ROCHE-577466

PATIENT
  Sex: Male

DRUGS (7)
  1. ROCEPHIN [Suspect]
     Indication: PYURIA
     Dosage: STRENGTH REPORTED AS 2 GRAM/40 ML, FORM: INJECTABLE SOLUTION
     Route: 042
     Dates: start: 20080526, end: 20080529
  2. CIPROFLOXACIN HCL [Interacting]
     Indication: PYURIA
     Route: 042
     Dates: start: 20080526, end: 20080529
  3. PREVISCAN [Interacting]
     Indication: DRUG USE FOR UNKNOWN INDICATION
     Route: 048
     Dates: end: 20080526
  4. PREVISCAN [Interacting]
     Route: 048
     Dates: end: 20080529
  5. PREVISCAN [Interacting]
     Route: 048
  6. PREVISCAN [Interacting]
     Route: 048
  7. LASIX [Concomitant]

REACTIONS (2)
  - DRUG INTERACTION [None]
  - INTERNATIONAL NORMALISED RATIO INCREASED [None]
